FAERS Safety Report 23040275 (Version 1)
Quarter: 2023Q4

REPORT INFORMATION
  Report Type: Spontaneous
  Country: DE (occurrence: DE)
  Receive Date: 20231006
  Receipt Date: 20231006
  Transmission Date: 20240110
  Serious: Yes (Hospitalization, Other)
  Sender: FDA-Public Use
  Company Number: DE-EMBRYOTOX-202208511

PATIENT
  Age: 1 Day
  Sex: Female
  Weight: 3.65 kg

DRUGS (4)
  1. DULOXETINE [Suspect]
     Active Substance: DULOXETINE
     Indication: Panic disorder
     Dosage: 60 MILLIGRAM DAILY; 60 [MG/D ]
     Dates: start: 20220617, end: 20230318
  2. BOOSTRIX [Concomitant]
     Active Substance: TETANUS TOXOID, REDUCED DIPHTHERIA TOXOID AND ACELLULAR PERTUSSIS VACCINE, ADSORBED ANTIGENS
     Indication: Immunisation
     Dates: start: 20230102, end: 20230102
  3. INFLUVAC [Concomitant]
     Active Substance: INFLUENZA VIRUS VACCINE TRIVALENT TYPE A+B
     Indication: Immunisation
     Dates: start: 20221012, end: 20221012
  4. PROGESTERONE [Concomitant]
     Active Substance: PROGESTERONE
     Indication: Product used for unknown indication
     Dosage: 200 MILLIGRAM DAILY; 200 [MG/D ]/ AT NIGHT

REACTIONS (7)
  - Temperature regulation disorder [Recovered/Resolved]
  - Neonatal tachypnoea [Recovered/Resolved]
  - Respiratory disorder neonatal [Recovered/Resolved]
  - Transient tachypnoea of the newborn [Recovered/Resolved]
  - Poor feeding infant [Recovered/Resolved]
  - Neonatal hypoxia [Recovered/Resolved]
  - Foetal exposure during pregnancy [Unknown]

NARRATIVE: CASE EVENT DATE: 20230301
